FAERS Safety Report 4369506-8 (Version None)
Quarter: 2004Q2

REPORT INFORMATION
  Report Type: 
  Country: None (occurrence: None)
  Receive Date: 20040524
  Receipt Date: 20040524
  Transmission Date: 20050107
  Serious: Yes (Death)
  Sender: FDA-Public Use
  Company Number: TPA2004A00647

PATIENT
  Age: 53 Year
  Sex: Male

DRUGS (1)
  1. ACTOS (PIOGLITAZONE HYDROHCLORIDE) (15 MILLIGRAM, TALBETS) [Suspect]
     Dosage: 15 MG, 2 IN 1 D, PER ORAL
     Route: 048

REACTIONS (1)
  - DEATH [None]
